FAERS Safety Report 4295892-3 (Version None)
Quarter: 2004Q1

REPORT INFORMATION
  Report Type: 
  Country: None (occurrence: None)
  Receive Date: 20040216
  Receipt Date: 20031202
  Transmission Date: 20041129
  Serious: No
  Sender: FDA-Public Use
  Company Number: US-GLAXOSMITHKLINE-A0441640A

PATIENT
  Age: 53 Year
  Sex: Male

DRUGS (5)
  1. LAMICTAL [Suspect]
     Indication: BIPOLAR DISORDER
     Dosage: 100MG PER DAY
     Route: 048
     Dates: start: 20031007, end: 20031202
  2. WELLBUTRIN [Concomitant]
  3. XANAX [Concomitant]
  4. LIPITOR [Concomitant]
  5. INDERAL [Concomitant]

REACTIONS (2)
  - RASH [None]
  - VISION BLURRED [None]
